FAERS Safety Report 9400398 (Version 1)
Quarter: 2013Q3

REPORT INFORMATION
  Report Type: Spontaneous
  Country: JP (occurrence: JP)
  Receive Date: 20130715
  Receipt Date: 20130715
  Transmission Date: 20140515
  Serious: Yes (Death, Life-Threatening, Hospitalization)
  Sender: FDA-Public Use
  Company Number: JP-WATSON-2013-11938

PATIENT
  Age: 76 Year
  Sex: Female

DRUGS (1)
  1. ETODOLAC (WATSON LABORATORIES) [Suspect]
     Indication: SPINAL OSTEOARTHRITIS
     Dosage: UNK
     Route: 065

REACTIONS (4)
  - Toxic epidermal necrolysis [Not Recovered/Not Resolved]
  - Histiocytosis haematophagic [Fatal]
  - Sepsis [Fatal]
  - Liver disorder [Not Recovered/Not Resolved]
